FAERS Safety Report 21447715 (Version 1)
Quarter: 2022Q4

REPORT INFORMATION
  Report Type: Spontaneous
  Country: US (occurrence: US)
  Receive Date: 20221012
  Receipt Date: 20221012
  Transmission Date: 20230113
  Serious: No
  Sender: FDA-Public Use
  Company Number: US-BRISTOL-MYERS SQUIBB COMPANY-2022-114521

PATIENT
  Age: 75 Year
  Sex: Female

DRUGS (2)
  1. HYDROXYUREA [Interacting]
     Active Substance: HYDROXYUREA
     Indication: Platelet count increased
     Dosage: FREQ : DAILY MONDAY - FRIDAY
     Route: 048
  2. HYDROCHLOROTHIAZIDE [Concomitant]
     Active Substance: HYDROCHLOROTHIAZIDE
     Indication: Product used for unknown indication
     Route: 065

REACTIONS (3)
  - Epistaxis [Recovered/Resolved]
  - Off label use [Unknown]
  - Drug interaction [Unknown]

NARRATIVE: CASE EVENT DATE: 20220801
